FAERS Safety Report 4888517-7 (Version None)
Quarter: 2005Q4

REPORT INFORMATION
  Report Type: 
  Country: None (occurrence: None)
  Receive Date: 20051215
  Receipt Date: 20051013
  Transmission Date: 20060501
  Serious: Yes (Hospitalization)
  Sender: FDA-Public Use
  Company Number: 2005106261

PATIENT
  Age: 84 Year
  Sex: Female
  Weight: 69.4003 kg

DRUGS (9)
  1. BEXTRA [Suspect]
     Indication: RHEUMATOID ARTHRITIS
     Dosage: UNKNOWN (1 IN 1 D), ORAL
     Route: 048
  2. CELEBREX [Suspect]
     Indication: RHEUMATOID ARTHRITIS
     Dosage: UNKNOWN (1 IN 1 D), ORAL
     Route: 048
  3. THYROID TAB [Concomitant]
  4. NORVASC [Concomitant]
  5. PLAQUENIL [Concomitant]
  6. TRAMADOL HCL [Concomitant]
  7. HYZAAR [Concomitant]
  8. MIACALCIN [Concomitant]
  9. ULTRAM [Concomitant]

REACTIONS (4)
  - BLOOD CHOLESTEROL INCREASED [None]
  - HYPERSENSITIVITY [None]
  - MYOCARDIAL INFARCTION [None]
  - RHEUMATOID ARTHRITIS [None]
